FAERS Safety Report 20710443 (Version 2)
Quarter: 2022Q2

REPORT INFORMATION
  Report Type: Spontaneous
  Country: GB (occurrence: GB)
  Receive Date: 20220414
  Receipt Date: 20220504
  Transmission Date: 20220720
  Serious: Yes (Death, Hospitalization, Other)
  Sender: FDA-Public Use
  Company Number: GB-BRISTOL-MYERS SQUIBB COMPANY-2022-015477

PATIENT
  Age: 73 Year
  Sex: Male

DRUGS (2)
  1. APIXABAN [Suspect]
     Active Substance: APIXABAN
     Indication: Heart rate abnormal
     Dosage: UNK
     Route: 065
     Dates: start: 201509, end: 201602
  2. APIXABAN [Suspect]
     Active Substance: APIXABAN
     Indication: Cerebrovascular accident prophylaxis
     Dosage: UNK, UNAV.; FREQ : UNAV.FIRST BLEED ON 04-FEB-2016 AND APIXABAN WAS DISCONTINUED AT THIS TIME
     Route: 065
     Dates: start: 201608

REACTIONS (2)
  - Haemorrhagic transformation stroke [Fatal]
  - Haemorrhagic stroke [Unknown]

NARRATIVE: CASE EVENT DATE: 20160101
